FAERS Safety Report 18637191 (Version 1)
Quarter: 2020Q4

REPORT INFORMATION
  Report Type: Report from Study
  Country: US (occurrence: US)
  Receive Date: 20201218
  Receipt Date: 20201218
  Transmission Date: 20210114
  Serious: No
  Sender: FDA-Public Use
  Company Number: US-REGENERON PHARMACEUTICALS, INC.-2020-50609

PATIENT

DRUGS (5)
  1. EYLEA [Suspect]
     Active Substance: AFLIBERCEPT
     Indication: DIABETIC RETINAL OEDEMA
     Dosage: OD (RIGHT EYE)
     Route: 031
     Dates: start: 20200615, end: 20200615
  2. EYLEA [Suspect]
     Active Substance: AFLIBERCEPT
     Dosage: OS (LEFT EYE)
     Route: 031
     Dates: start: 20200721, end: 20200721
  3. EYLEA [Suspect]
     Active Substance: AFLIBERCEPT
     Dosage: OD (RIGHT EYE)
     Route: 031
     Dates: start: 20200714, end: 20200714
  4. EYLEA [Suspect]
     Active Substance: AFLIBERCEPT
     Indication: DIABETIC RETINOPATHY
     Dosage: 2 MG, Q4W, BOTH EYES
     Route: 031
     Dates: start: 2019
  5. EYLEA [Suspect]
     Active Substance: AFLIBERCEPT
     Dosage: OS (LEFT EYE)
     Route: 031
     Dates: start: 20200623, end: 20200623

REACTIONS (1)
  - Product dose omission issue [Recovered/Resolved]

NARRATIVE: CASE EVENT DATE: 201909
